FAERS Safety Report 15716098 (Version 3)
Quarter: 2019Q3

REPORT INFORMATION
  Report Type: Spontaneous
  Country: BG (occurrence: BG)
  Receive Date: 20181213
  Receipt Date: 20190829
  Transmission Date: 20191004
  Serious: Yes (Other)
  Sender: FDA-Public Use
  Company Number: PHHY2018BG177621

PATIENT
  Age: 40 Year
  Sex: Female

DRUGS (2)
  1. ZOMETA [Suspect]
     Active Substance: ZOLEDRONIC ACID
     Indication: INVASIVE DUCTAL BREAST CARCINOMA
     Route: 065
  2. XGEVA [Suspect]
     Active Substance: DENOSUMAB
     Indication: INVASIVE DUCTAL BREAST CARCINOMA
     Route: 058

REACTIONS (2)
  - Osteitis [Unknown]
  - Osteonecrosis of jaw [Unknown]
